FAERS Safety Report 13786205 (Version 2)
Quarter: 2017Q3

REPORT INFORMATION
  Report Type: Spontaneous
  Country: IT (occurrence: IT)
  Receive Date: 20170725
  Receipt Date: 20170801
  Transmission Date: 20171127
  Serious: Yes (Hospitalization)
  Sender: FDA-Public Use
  Company Number: IT-ROCHE-1966753

PATIENT
  Age: 80 Year
  Sex: Female

DRUGS (2)
  1. AVASTIN [Suspect]
     Active Substance: BEVACIZUMAB
     Indication: MACULOPATHY
     Dosage: 1 X 400 MG VIAL CONCENTRATE FOR SOLUTION FOR INFUCION CYCLICAL
     Route: 031
     Dates: start: 20170529, end: 20170529
  2. LUCENTIS [Suspect]
     Active Substance: RANIBIZUMAB
     Indication: MACULOPATHY
     Dosage: 0.30ML,0.5 MG /0.05ML,1 VIAL WITH 1 NEEDLE,1 SYRINGE CYCLICAL
     Route: 031
     Dates: start: 20170508, end: 20170508

REACTIONS (3)
  - Syncope [Recovered/Resolved]
  - Off label use [Unknown]
  - Acute kidney injury [Recovered/Resolved]

NARRATIVE: CASE EVENT DATE: 20170508
